FAERS Safety Report 8836635 (Version 1)
Quarter: 2012Q4

REPORT INFORMATION
  Report Type: Spontaneous
  Country: US (occurrence: None)
  Receive Date: 20121010
  Receipt Date: 20121010
  Transmission Date: 20130627
  Serious: Yes (Other)
  Sender: FDA-Public Use
  Company Number: 2012MA011749

PATIENT
  Age: 16 Year
  Sex: Female

DRUGS (6)
  1. AMANTADINE HYDROCHLORIDE [Suspect]
     Indication: EXTRAPYRAMIDAL SYMPTOMS
     Route: 048
  2. LORAZEPAM [Concomitant]
  3. HALOPERIDOL [Concomitant]
  4. DIPHENHYDRAMINE [Concomitant]
  5. OLANZAPINE [Concomitant]
  6. BUPROPION [Concomitant]

REACTIONS (1)
  - Visual acuity reduced [None]
